FAERS Safety Report 14627291 (Version 1)
Quarter: 2018Q1

REPORT INFORMATION
  Report Type: Spontaneous
  Country: US (occurrence: US)
  Receive Date: 20180312
  Receipt Date: 20180312
  Transmission Date: 20180509
  Serious: Yes (Other)
  Sender: FDA-Public Use
  Company Number: US-TEVA-2018-US-866974

PATIENT
  Sex: Female

DRUGS (2)
  1. ATENOLOL. [Suspect]
     Active Substance: ATENOLOL
  2. ATENOLOL. [Suspect]
     Active Substance: ATENOLOL

REACTIONS (5)
  - Drug intolerance [Unknown]
  - Feeling abnormal [Unknown]
  - Heart rate decreased [Unknown]
  - Adverse drug reaction [Unknown]
  - Blood pressure increased [Unknown]
